FAERS Safety Report 4842519-5 (Version None)
Quarter: 2005Q4

REPORT INFORMATION
  Report Type: 
  Country: None (occurrence: None)
  Receive Date: 20051129
  Receipt Date: 20051115
  Transmission Date: 20060501
  Serious: Yes (Hospitalization)
  Sender: FDA-Public Use
  Company Number: CIP05002677

PATIENT
  Age: 79 Year
  Sex: Female

DRUGS (10)
  1. ACTONEL [Suspect]
     Indication: OSTEOPOROSIS
     Dosage: 35 MG ONCE WEEKLY, ORAL
  2. ZOFRAN [Concomitant]
  3. COUMADIN [Concomitant]
  4. MORPHINE [Concomitant]
  5. OXYCODONE (OXYCODONE) [Concomitant]
  6. COMPAZINE (PROCHLORPERAZIONE EDISYLATE) [Concomitant]
  7. APAP (PARACETAMOL) [Concomitant]
  8. SENOKOT (SENNA ALEXANDRINA FRUIT) [Concomitant]
  9. PEPCID [Concomitant]
  10. TOPROL-XL [Concomitant]

REACTIONS (5)
  - BODY TEMPERATURE INCREASED [None]
  - GASTRIC PERFORATION [None]
  - INFREQUENT BOWEL MOVEMENTS [None]
  - POST PROCEDURAL COMPLICATION [None]
  - POSTOPERATIVE ILEUS [None]
